FAERS Safety Report 4596788-X (Version None)
Quarter: 2005Q1

REPORT INFORMATION
  Report Type: 
  Country: None (occurrence: None)
  Receive Date: 20050228
  Receipt Date: 20040720
  Transmission Date: 20050727
  Serious: Yes (Disabling)
  Sender: FDA-Public Use
  Company Number: 8527

PATIENT
  Age: 7 Year
  Sex: Male

DRUGS (5)
  1. METHOTREXATE [Suspect]
     Indication: BONE SARCOMA
     Dosage: 380 G TOTAL, UNK
     Route: 065
  2. IFOSFAMIDE [Suspect]
     Indication: BONE SARCOMA
     Dosage: UNK
     Route: 065
  3. BLEOMYCIN [Concomitant]
  4. CISPLATIN [Concomitant]
  5. DOXORUBICIN HCL [Concomitant]

REACTIONS (1)
  - OSTEOPOROTIC FRACTURE [None]
